FAERS Safety Report 17338148 (Version 1)
Quarter: 2020Q1

REPORT INFORMATION
  Report Type: Spontaneous
  Country: US (occurrence: US)
  Receive Date: 20200129
  Receipt Date: 20200129
  Transmission Date: 20200409
  Serious: No
  Sender: FDA-Public Use
  Company Number: US-UNITED THERAPEUTICS-UNT-2019-018150

PATIENT
  Sex: Female
  Weight: 62.13 kg

DRUGS (3)
  1. REMODULIN [Suspect]
     Active Substance: TREPROSTINIL
     Dosage: UNK UNK, CONTINUING
     Route: 058
  2. REVATIO [Concomitant]
     Active Substance: SILDENAFIL CITRATE
     Indication: PRODUCT USED FOR UNKNOWN INDICATION
     Dosage: UNK
     Route: 065
  3. REMODULIN [Suspect]
     Active Substance: TREPROSTINIL
     Indication: PULMONARY ARTERIAL HYPERTENSION
     Dosage: 0.0754 ?G/KG, CONTINUING
     Route: 058
     Dates: start: 20120419

REACTIONS (9)
  - Infusion site swelling [Unknown]
  - Infusion site warmth [Recovering/Resolving]
  - Infusion site induration [Unknown]
  - Diarrhoea [Not Recovered/Not Resolved]
  - Infusion site irritation [Unknown]
  - Infusion site erythema [Recovering/Resolving]
  - Infusion site discolouration [Unknown]
  - Infusion site pain [Unknown]
  - Flushing [Not Recovered/Not Resolved]
